FAERS Safety Report 11001804 (Version 9)
Quarter: 2021Q1

REPORT INFORMATION
  Report Type: Spontaneous
  Country: US (occurrence: US)
  Receive Date: 20150408
  Receipt Date: 20210310
  Transmission Date: 20210419
  Serious: Yes (Hospitalization, Other)
  Sender: FDA-Public Use
  Company Number: US-PFIZER INC-2015120876

PATIENT
  Age: 54 Year
  Sex: Male
  Weight: 68 kg

DRUGS (11)
  1. PRAVASTATIN. [Concomitant]
     Active Substance: PRAVASTATIN
     Dosage: 80 MG, 1X/DAY (80 MG, TABLET, ONCE A DAY)
     Dates: start: 2000
  2. NORVASC [Concomitant]
     Active Substance: AMLODIPINE BESYLATE
     Dosage: 5 MG, 1X/DAY
     Dates: start: 2000
  3. RAPAMUNE [Suspect]
     Active Substance: SIROLIMUS
     Indication: RENAL TRANSPLANT
  4. PREDNISONE. [Suspect]
     Active Substance: PREDNISONE
     Dosage: 5 MG, 1X/DAY
     Dates: start: 200011
  5. CALCIUM 600 + D [Concomitant]
     Active Substance: CALCIUM\VITAMIN D
     Dosage: UNK, 1X/DAY
     Dates: start: 2000
  6. VICODIN [Concomitant]
     Active Substance: ACETAMINOPHEN\HYDROCODONE BITARTRATE
     Dosage: UNK UNK, AS NEEDED
     Dates: start: 2000
  7. RAPAMUNE [Suspect]
     Active Substance: SIROLIMUS
     Indication: PROPHYLAXIS AGAINST TRANSPLANT REJECTION
     Dosage: 1 MG, 2X/DAY (90?DAY SUPPLY, TAKE ONE TAB PO BID, QUANTITY 180)
     Route: 048
     Dates: start: 200011
  8. TOPROL XL [Suspect]
     Active Substance: METOPROLOL SUCCINATE
     Dosage: 100 MG, 1X/DAY
     Dates: start: 200011
  9. RAMIPRIL. [Concomitant]
     Active Substance: RAMIPRIL
     Dosage: 10 MG, 2X/DAY
     Dates: start: 2000
  10. ASPIRIN. [Concomitant]
     Active Substance: ASPIRIN
     Dosage: 81 MG, 1X/DAY (81 MG, TABLET, ONCE A DAY AT NIGHT)
     Dates: start: 2000
  11. CELLCEPT [Suspect]
     Active Substance: MYCOPHENOLATE MOFETIL\MYCOPHENOLATE MOFETIL HYDROCHLORIDE
     Indication: PROPHYLAXIS AGAINST TRANSPLANT REJECTION
     Dosage: 500 MG, 2X/DAY
     Dates: start: 200011

REACTIONS (6)
  - Rectal cancer [Unknown]
  - Intervertebral disc degeneration [Unknown]
  - Lung neoplasm malignant [Recovered/Resolved]
  - Asbestosis [Unknown]
  - Vertebral osteophyte [Unknown]
  - Recurrent cancer [Recovered/Resolved]

NARRATIVE: CASE EVENT DATE: 201101
